FAERS Safety Report 18078234 (Version 1)
Quarter: 2020Q3

REPORT INFORMATION
  Report Type: Spontaneous
  Country: ES (occurrence: ES)
  Receive Date: 20200728
  Receipt Date: 20200728
  Transmission Date: 20201103
  Serious: Yes (Hospitalization, Other)
  Sender: FDA-Public Use
  Company Number: ES-ASTRAZENECA-2020SE93116

PATIENT
  Sex: Female

DRUGS (1)
  1. QUETIAPINA [Suspect]
     Active Substance: QUETIAPINE
     Indication: DEMENTIA
     Dosage: 25MG?25MG?50?MG
     Route: 048
     Dates: start: 20200706, end: 20200709

REACTIONS (1)
  - Neuroleptic malignant syndrome [Recovering/Resolving]

NARRATIVE: CASE EVENT DATE: 20200709
